FAERS Safety Report 25450760 (Version 1)
Quarter: 2025Q2

REPORT INFORMATION
  Report Type: Spontaneous
  Country: DE (occurrence: DE)
  Receive Date: 20250618
  Receipt Date: 20250618
  Transmission Date: 20250716
  Serious: Yes (Death, Hospitalization)
  Sender: MYLAN
  Company Number: DE-MYLANLABS-2025M1049919

PATIENT
  Age: 61 Year
  Sex: Female

DRUGS (32)
  1. TRANEXAMIC ACID [Suspect]
     Active Substance: TRANEXAMIC ACID
     Indication: Disseminated intravascular coagulation
     Dosage: 1 GRAM, Q8H
  2. TRANEXAMIC ACID [Suspect]
     Active Substance: TRANEXAMIC ACID
     Dosage: 1 GRAM, Q8H
     Route: 065
  3. TRANEXAMIC ACID [Suspect]
     Active Substance: TRANEXAMIC ACID
     Dosage: 1 GRAM, Q8H
     Route: 065
  4. TRANEXAMIC ACID [Suspect]
     Active Substance: TRANEXAMIC ACID
     Dosage: 1 GRAM, Q8H
  5. TRANEXAMIC ACID [Suspect]
     Active Substance: TRANEXAMIC ACID
     Indication: Disseminated intravascular coagulation
  6. TRANEXAMIC ACID [Suspect]
     Active Substance: TRANEXAMIC ACID
     Route: 065
  7. TRANEXAMIC ACID [Suspect]
     Active Substance: TRANEXAMIC ACID
     Route: 065
  8. TRANEXAMIC ACID [Suspect]
     Active Substance: TRANEXAMIC ACID
  9. PROTHROMBIN [Suspect]
     Active Substance: PROTHROMBIN
     Indication: Disseminated intravascular coagulation
  10. PROTHROMBIN [Suspect]
     Active Substance: PROTHROMBIN
     Route: 065
  11. PROTHROMBIN [Suspect]
     Active Substance: PROTHROMBIN
     Route: 065
  12. PROTHROMBIN [Suspect]
     Active Substance: PROTHROMBIN
  13. FIBRINOGEN [Suspect]
     Active Substance: FIBRINOGEN HUMAN
     Indication: Disseminated intravascular coagulation
  14. FIBRINOGEN [Suspect]
     Active Substance: FIBRINOGEN HUMAN
     Route: 065
  15. FIBRINOGEN [Suspect]
     Active Substance: FIBRINOGEN HUMAN
     Route: 065
  16. FIBRINOGEN [Suspect]
     Active Substance: FIBRINOGEN HUMAN
  17. FACTOR XIII CONCENTRATE (HUMAN) [Suspect]
     Active Substance: FACTOR XIII CONCENTRATE (HUMAN)
     Indication: Disseminated intravascular coagulation
  18. FACTOR XIII CONCENTRATE (HUMAN) [Suspect]
     Active Substance: FACTOR XIII CONCENTRATE (HUMAN)
     Route: 065
  19. FACTOR XIII CONCENTRATE (HUMAN) [Suspect]
     Active Substance: FACTOR XIII CONCENTRATE (HUMAN)
     Route: 065
  20. FACTOR XIII CONCENTRATE (HUMAN) [Suspect]
     Active Substance: FACTOR XIII CONCENTRATE (HUMAN)
  21. MIDAZOLAM [Concomitant]
     Active Substance: MIDAZOLAM
     Indication: Sedation
  22. MIDAZOLAM [Concomitant]
     Active Substance: MIDAZOLAM
     Indication: Analgesic therapy
     Route: 042
  23. MIDAZOLAM [Concomitant]
     Active Substance: MIDAZOLAM
     Route: 042
  24. MIDAZOLAM [Concomitant]
     Active Substance: MIDAZOLAM
  25. LEVETIRACETAM [Concomitant]
     Active Substance: LEVETIRACETAM
     Indication: Sedation
  26. LEVETIRACETAM [Concomitant]
     Active Substance: LEVETIRACETAM
     Indication: Analgesic therapy
     Route: 042
  27. LEVETIRACETAM [Concomitant]
     Active Substance: LEVETIRACETAM
     Route: 042
  28. LEVETIRACETAM [Concomitant]
     Active Substance: LEVETIRACETAM
  29. PROPOFOL [Concomitant]
     Active Substance: PROPOFOL
     Indication: Sedation
     Dosage: 2 MILLIGRAM/KILOGRAM, QMINUTE
  30. PROPOFOL [Concomitant]
     Active Substance: PROPOFOL
     Indication: Analgesic therapy
     Dosage: 2 MILLIGRAM/KILOGRAM, QMINUTE
     Route: 042
  31. PROPOFOL [Concomitant]
     Active Substance: PROPOFOL
     Dosage: 2 MILLIGRAM/KILOGRAM, QMINUTE
     Route: 042
  32. PROPOFOL [Concomitant]
     Active Substance: PROPOFOL
     Dosage: 2 MILLIGRAM/KILOGRAM, QMINUTE

REACTIONS (1)
  - Drug ineffective [Fatal]
